FAERS Safety Report 6560866-6 (Version None)
Quarter: 2010Q1

REPORT INFORMATION
  Report Type: 
  Country: None (occurrence: None)
  Receive Date: 20100129
  Receipt Date: 20091008
  Transmission Date: 20100710
  Serious: Yes (Hospitalization)
  Sender: FDA-Public Use
  Company Number: US-ABBOTT-09P-163-0599652-00

PATIENT
  Sex: Male
  Weight: 88.53 kg

DRUGS (4)
  1. HUMIRA [Suspect]
     Indication: PSORIATIC ARTHROPATHY
     Dates: start: 20080801
  2. HUMIRA [Suspect]
     Dates: start: 20090501
  3. LODINE [Concomitant]
     Indication: PSORIATIC ARTHROPATHY
  4. INH [Concomitant]
     Indication: ANTIBIOTIC PROPHYLAXIS
     Dates: start: 20090101, end: 20090801

REACTIONS (3)
  - PHLEBOSCLEROSIS [None]
  - SKIN LACERATION [None]
  - STAPHYLOCOCCAL INFECTION [None]
